FAERS Safety Report 4868102-3 (Version None)
Quarter: 2005Q4

REPORT INFORMATION
  Report Type: 
  Country: None (occurrence: None)
  Receive Date: 20051229
  Receipt Date: 20051219
  Transmission Date: 20060501
  Serious: Yes (Hospitalization)
  Sender: FDA-Public Use
  Company Number: US-JNJFOC-20051204579

PATIENT
  Sex: Female
  Weight: 68.04 kg

DRUGS (1)
  1. ORTHO EVRA [Suspect]
     Indication: CONTRACEPTION
     Route: 062
     Dates: start: 20050201, end: 20051101

REACTIONS (5)
  - AGGRESSION [None]
  - DEPRESSION [None]
  - HEADACHE [None]
  - IRRITABILITY [None]
  - SYMPATHECTOMY [None]
